FAERS Safety Report 7572913 (Version 3)
Quarter: 2012Q4

REPORT INFORMATION
  Report Type: 
  Country: US (occurrence: US)
  Receive Date: 20100903
  Receipt Date: 20120911
  Transmission Date: 20130627
  Serious: Yes (Other)
  Sender: FDA-Public Use
  Company Number: US-ROCHE-724542

PATIENT
  Sex: Female

DRUGS (3)
  1. AVASTIN [Suspect]
     Indication: AGE-RELATED MACULAR DEGENERATION
     Dosage: ROUTE: IN THE EYE
     Route: 047
     Dates: start: 201002, end: 201202
  2. LUCENTIS [Suspect]
     Indication: AGE-RELATED MACULAR DEGENERATION
     Dosage: ROUTE: IN THE EYE
     Route: 043
     Dates: start: 201202, end: 201207
  3. LUCENTIS [Suspect]
     Dosage: last dose was taken on 9/Aug/2012
     Route: 065

REACTIONS (2)
  - Scotoma [Unknown]
  - Visual impairment [Unknown]
